FAERS Safety Report 9457429 (Version 1)
Quarter: 2013Q3

REPORT INFORMATION
  Report Type: Spontaneous
  Country: US (occurrence: None)
  Receive Date: 20130812
  Receipt Date: 20130812
  Transmission Date: 20140515
  Serious: Yes (Hospitalization, Disabling)
  Sender: FDA-Public Use
  Company Number: None

PATIENT
  Age: 20 Year
  Sex: Male
  Weight: 68 kg

DRUGS (1)
  1. MINOXIDIL [Suspect]
     Indication: ALOPECIA
     Dosage: TWICE DAILY  APPLIED TO A SURFACE, USUALLY THE SKIN

REACTIONS (8)
  - Gait disturbance [None]
  - Fatigue [None]
  - Malaise [None]
  - Sensory loss [None]
  - Muscle spasms [None]
  - Painful defaecation [None]
  - Tuberculosis [None]
  - Dysuria [None]
